FAERS Safety Report 20029986 (Version 3)
Quarter: 2022Q1

REPORT INFORMATION
  Report Type: Spontaneous
  Country: US (occurrence: US)
  Receive Date: 20211103
  Receipt Date: 20220307
  Transmission Date: 20220424
  Serious: Yes (Hospitalization)
  Sender: FDA-Public Use
  Company Number: US-PFIZER INC-202101302335

PATIENT
  Age: 71 Year
  Sex: Male

DRUGS (4)
  1. XELJANZ XR [Suspect]
     Active Substance: TOFACITINIB CITRATE
     Dosage: 11 MG
     Dates: start: 20200401, end: 20210910
  2. XELJANZ XR [Suspect]
     Active Substance: TOFACITINIB CITRATE
     Dosage: 11 MG
     Dates: start: 20220216
  3. PLAVIX [Concomitant]
     Active Substance: CLOPIDOGREL BISULFATE
     Dosage: UNK
  4. OMEPRAZOLE [Concomitant]
     Active Substance: OMEPRAZOLE
     Dosage: UNK

REACTIONS (6)
  - Red blood cell count abnormal [Unknown]
  - Gastrointestinal haemorrhage [Unknown]
  - Blood pressure abnormal [Unknown]
  - Herpes zoster [Unknown]
  - Burning sensation [Unknown]
  - Scar [Recovered/Resolved]
